FAERS Safety Report 5798123-8 (Version None)
Quarter: 2008Q2

REPORT INFORMATION
  Report Type: 
  Country: None (occurrence: None)
  Receive Date: 20080620
  Receipt Date: 20080415
  Transmission Date: 20081010
  Serious: Yes (Death)
  Sender: FDA-Public Use
  Company Number: T200800687

PATIENT

DRUGS (4)
  1. OXYCODONE HCL [Suspect]
  2. OXCODONE/ACETAMINOPHEN(OXYCODONE HCL, ACETAMINOPHEN) UNKNOWN [Suspect]
  3. OXYCODONE AND ACETAMINOPHEN [Suspect]
  4. METHADOSE [Suspect]

REACTIONS (1)
  - ACCIDENTAL OVERDOSE [None]
